FAERS Safety Report 6637807-6 (Version None)
Quarter: 2010Q1

REPORT INFORMATION
  Report Type: 
  Country: None (occurrence: None)
  Receive Date: 20100317
  Receipt Date: 20100302
  Transmission Date: 20100710
  Serious: Yes (Other)
  Sender: FDA-Public Use
  Company Number: PHHY2010FR08641

PATIENT
  Sex: Male
  Weight: 60 kg

DRUGS (4)
  1. RASILEZ [Suspect]
     Dosage: 150 MG DAILY
  2. LODOZ [Concomitant]
  3. LASILIX [Concomitant]
  4. EUPRESSYL [Concomitant]

REACTIONS (2)
  - BLOOD CREATINE INCREASED [None]
  - RENAL ARTERY STENOSIS [None]
